FAERS Safety Report 8486897-7 (Version None)
Quarter: 2012Q3

REPORT INFORMATION
  Report Type: 
  Country: None (occurrence: None)
  Receive Date: 20120704
  Receipt Date: 20120629
  Transmission Date: 20120928
  Serious: Yes (Other)
  Sender: FDA-Public Use
  Company Number: BR-ELI_LILLY_AND_COMPANY-BR201205010585

PATIENT
  Sex: Male

DRUGS (6)
  1. HUMALOG [Suspect]
     Dosage: UNK, PRN
     Route: 058
  2. HUMALOG [Suspect]
     Dosage: 2 IU, OTHER
     Route: 058
     Dates: start: 20120629, end: 20120629
  3. HUMULIN N [Suspect]
     Dosage: 8 IU, EACH MORNING
     Route: 058
     Dates: start: 20120628
  4. HUMALOG [Suspect]
     Indication: DIABETES MELLITUS
     Dosage: UNK UNK, PRN
     Route: 058
     Dates: start: 20120530
  5. HUMULIN N [Suspect]
     Indication: DIABETES MELLITUS
     Dosage: 2 IU, BID
     Route: 058
     Dates: start: 20120530
  6. HUMULIN N [Suspect]
     Dosage: 4 IU, OTHER
     Route: 058
     Dates: start: 20120628

REACTIONS (2)
  - INCORRECT DOSE ADMINISTERED [None]
  - BLOOD GLUCOSE FLUCTUATION [None]
